FAERS Safety Report 20654021 (Version 1)
Quarter: 2022Q1

REPORT INFORMATION
  Report Type: Spontaneous
  Country: None (occurrence: FR)
  Receive Date: 20220330
  Receipt Date: 20220330
  Transmission Date: 20220423
  Serious: Yes (Death)
  Sender: FDA-Public Use
  Company Number: FR-B.Braun Medical Inc.-2127235

PATIENT
  Age: 55 Year
  Sex: Male
  Weight: 75 kg

DRUGS (15)
  1. SODIUM CHLORIDE [Suspect]
     Active Substance: SODIUM CHLORIDE
     Indication: Product used for unknown indication
     Route: 042
  2. UNSPECIFIED INGREDIENT [Suspect]
     Active Substance: UNSPECIFIED INGREDIENT
  3. PROPOFOL [Suspect]
     Active Substance: PROPOFOL
     Route: 042
  4. PROTAMINE SULFATE [Suspect]
     Active Substance: PROTAMINE SULFATE
     Route: 042
  5. EPHEDRINE [Suspect]
     Active Substance: EPHEDRINE
     Route: 042
  6. ETOMIDATE [Suspect]
     Active Substance: ETOMIDATE
     Route: 042
  7. LACTATED RINGERS SOLUTION [Suspect]
     Active Substance: CALCIUM CHLORIDE\POTASSIUM CHLORIDE\SODIUM CHLORIDE\SODIUM LACTATE
     Route: 042
  8. SUFENTANIL [Suspect]
     Active Substance: SUFENTANIL
     Route: 042
  9. DOBUTAMINE [Suspect]
     Active Substance: DOBUTAMINE HYDROCHLORIDE
     Route: 042
  10. CISATRACURIUM [Suspect]
     Active Substance: CISATRACURIUM
     Route: 042
  11. CLOXACILLIN [Suspect]
     Active Substance: CLOXACILLIN
     Route: 042
  12. KETAMINE HYDROCHLORIDE [Suspect]
     Active Substance: KETAMINE HYDROCHLORIDE
     Route: 042
  13. HEPARIN SODIUM [Suspect]
     Active Substance: HEPARIN SODIUM
     Route: 042
  14. CALCIUM CL\HISTIDINE\MAGNESIUM\MANNITOL\POTASSIUM\SODIUM CL\TRYPTOPHAN [Suspect]
     Active Substance: CALCIUM CL\HISTIDINE\MAGNESIUM\MANNITOL\POTASSIUM\SODIUM CL\TRYPTOPHAN
     Route: 013
  15. RINGERS SOLUTION [Suspect]
     Active Substance: CALCIUM CHLORIDE\POTASSIUM CHLORIDE\SODIUM CHLORIDE
     Route: 042

REACTIONS (2)
  - Cardiogenic shock [None]
  - Left ventricular failure [None]

NARRATIVE: CASE EVENT DATE: 20170714
